FAERS Safety Report 6394361-4 (Version None)
Quarter: 2009Q4

REPORT INFORMATION
  Report Type: 
  Country: None (occurrence: None)
  Receive Date: 20091006
  Receipt Date: 20090928
  Transmission Date: 20100525
  Serious: Yes (Death, Disabling)
  Sender: FDA-Public Use
  Company Number: 2009AL006192

PATIENT
  Age: 50 Year
  Sex: Female

DRUGS (5)
  1. GABAPENTIN [Suspect]
     Indication: PAIN
     Dosage: 1800 MG; QD; PO
     Route: 048
     Dates: start: 20090812, end: 20090903
  2. OXYCONTIN [Concomitant]
  3. ALFENTANIL [Concomitant]
  4. DICLOFENAC SODIUM [Concomitant]
  5. KETAMINE HCL [Concomitant]

REACTIONS (5)
  - BLISTER [None]
  - BLOOD ALBUMIN DECREASED [None]
  - GENERAL PHYSICAL HEALTH DETERIORATION [None]
  - MALIGNANT NEOPLASM PROGRESSION [None]
  - OEDEMA [None]
